FAERS Safety Report 7709700-9 (Version None)
Quarter: 2011Q3

REPORT INFORMATION
  Report Type: 
  Country: None (occurrence: None)
  Receive Date: 20110825
  Receipt Date: 20110818
  Transmission Date: 20111222
  Serious: Yes (Other)
  Sender: FDA-Public Use
  Company Number: JP-GLAXOSMITHKLINE-B0728284A

PATIENT
  Age: 68 Year
  Sex: Male

DRUGS (5)
  1. REQUIP [Suspect]
     Indication: PARKINSON'S DISEASE
     Route: 048
     Dates: start: 20090901
  2. REQUIP [Suspect]
     Dosage: 1.5MG PER DAY
     Route: 048
     Dates: start: 20110501, end: 20110526
  3. MENEST [Concomitant]
     Indication: PARKINSON'S DISEASE
     Route: 048
  4. REQUIP [Suspect]
     Route: 048
     Dates: start: 20110527, end: 20110619
  5. REQUIP [Suspect]
     Route: 048
     Dates: start: 20110621

REACTIONS (2)
  - SOMNOLENCE [None]
  - DEPRESSED LEVEL OF CONSCIOUSNESS [None]
